FAERS Safety Report 20882865 (Version 1)
Quarter: 2022Q2

REPORT INFORMATION
  Report Type: Spontaneous
  Country: US (occurrence: US)
  Receive Date: 20220527
  Receipt Date: 20220527
  Transmission Date: 20220721
  Serious: No
  Sender: FDA-Public Use
  Company Number: US-GILEAD-2022-0581971

PATIENT
  Sex: Male

DRUGS (5)
  1. SOFOSBUVIR\VELPATASVIR [Suspect]
     Active Substance: SOFOSBUVIR\VELPATASVIR
     Indication: Chronic hepatitis C
     Dosage: 1 DOSAGE FORM, QD
     Route: 048
  2. GABAPENTIN [Concomitant]
     Active Substance: GABAPENTIN
  3. MOTRIN [Concomitant]
     Active Substance: IBUPROFEN
  4. XANAX [Concomitant]
     Active Substance: ALPRAZOLAM
  5. METHADONE [Concomitant]
     Active Substance: METHADONE HYDROCHLORIDE

REACTIONS (2)
  - Dyspepsia [Not Recovered/Not Resolved]
  - Gastrointestinal sounds abnormal [Not Recovered/Not Resolved]
